FAERS Safety Report 4815983-5 (Version None)
Quarter: 2005Q4

REPORT INFORMATION
  Report Type: 
  Country: None (occurrence: None)
  Receive Date: 20051031
  Receipt Date: 20051025
  Transmission Date: 20060501
  Serious: Yes (Life-Threatening)
  Sender: FDA-Public Use
  Company Number: IT-ROCHE-422382

PATIENT
  Age: 57 Year
  Sex: Female

DRUGS (3)
  1. ROCEPHIN [Suspect]
     Route: 042
     Dates: start: 20051021, end: 20051021
  2. AUGMENTIN '125' [Suspect]
     Route: 042
     Dates: start: 20051021, end: 20051021
  3. CO-EFFERALGAN [Suspect]
     Route: 048
     Dates: start: 20051021, end: 20051021

REACTIONS (3)
  - DYSPNOEA [None]
  - OEDEMA [None]
  - URTICARIA [None]
